FAERS Safety Report 25545123 (Version 3)
Quarter: 2025Q3

REPORT INFORMATION
  Report Type: Spontaneous
  Country: EU (occurrence: EU)
  Receive Date: 20250711
  Receipt Date: 20250804
  Transmission Date: 20251021
  Serious: Yes (Life-Threatening, Hospitalization, Other)
  Sender: ALEXION PHARMACEUTICALS
  Company Number: EU-AstraZeneca-CH-00906154AM

PATIENT
  Age: 81 Year
  Sex: Female
  Weight: 76 kg

DRUGS (8)
  1. TAGRISSO [Suspect]
     Active Substance: OSIMERTINIB
     Indication: EGFR gene mutation
     Dosage: 80 MILLIGRAM, QD
     Dates: start: 201608
  2. TAGRISSO [Suspect]
     Active Substance: OSIMERTINIB
  3. KARDEGIC [Concomitant]
     Active Substance: ASPIRIN DL-LYSINE
  4. NEBIVOLOL [Concomitant]
     Active Substance: NEBIVOLOL
  5. ELIQUIS [Concomitant]
     Active Substance: APIXABAN
  6. BROMAZEPAM [Concomitant]
     Active Substance: BROMAZEPAM
  7. ACETAMINOPHEN\OPIUM [Concomitant]
     Active Substance: ACETAMINOPHEN\OPIUM
  8. MAGNESIUM [Concomitant]
     Active Substance: MAGNESIUM

REACTIONS (23)
  - Malignant neoplasm progression [Unknown]
  - Memory impairment [Unknown]
  - Suicidal ideation [Unknown]
  - Diarrhoea [Recovered/Resolved]
  - Off label use [Unknown]
  - Fatigue [Unknown]
  - Photosensitivity reaction [Unknown]
  - Depression [Unknown]
  - Gastrointestinal disorder [Unknown]
  - Bone pain [Unknown]
  - Weight increased [Unknown]
  - Spinal operation [Unknown]
  - Pain [Unknown]
  - Nerve injury [Unknown]
  - Tooth disorder [Unknown]
  - Dyspepsia [Unknown]
  - Cardiac disorder [Unknown]
  - Platelet count decreased [Unknown]
  - Blood creatinine abnormal [Unknown]
  - Renal disorder [Unknown]
  - White blood cell disorder [Unknown]
  - Oral disorder [Unknown]
  - Gait disturbance [Unknown]

NARRATIVE: CASE EVENT DATE: 20160101
